FAERS Safety Report 4700997-6 (Version None)
Quarter: 2005Q2

REPORT INFORMATION
  Report Type: 
  Country: None (occurrence: None)
  Receive Date: 20050628
  Receipt Date: 20050616
  Transmission Date: 20051028
  Serious: Yes (Hospitalization)
  Sender: FDA-Public Use
  Company Number: IE-BRISTOL-MYERS SQUIBB COMPANY-13008214

PATIENT
  Sex: Female

DRUGS (1)
  1. LIPOSTAT 10% [Suspect]
     Indication: BLOOD CHOLESTEROL INCREASED
     Route: 048

REACTIONS (5)
  - AMNESIA [None]
  - ASTHENIA [None]
  - BLINDNESS TRANSIENT [None]
  - PAIN [None]
  - THROAT TIGHTNESS [None]
